FAERS Safety Report 25299612 (Version 1)
Quarter: 2025Q2

REPORT INFORMATION
  Report Type: Spontaneous
  Country: US (occurrence: US)
  Receive Date: 20250512
  Receipt Date: 20250512
  Transmission Date: 20250716
  Serious: No
  Sender: BRISTOL-MYERS SQUIBB COMPANY
  Company Number: US-BRISTOL-MYERS SQUIBB COMPANY-2025-068492

PATIENT
  Age: 78 Year
  Sex: Male
  Weight: 100.7 kg

DRUGS (1)
  1. POMALYST [Suspect]
     Active Substance: POMALIDOMIDE
     Indication: Plasma cell myeloma
     Route: 048
     Dates: start: 2025

REACTIONS (6)
  - Asthenia [Unknown]
  - Dizziness [Unknown]
  - Rash [Unknown]
  - Confusional state [Unknown]
  - Hypersomnia [Unknown]
  - Gout [Unknown]

NARRATIVE: CASE EVENT DATE: 20250101
